FAERS Safety Report 7141017-6 (Version None)
Quarter: 2010Q4

REPORT INFORMATION
  Report Type: 
  Country: None (occurrence: None)
  Receive Date: 20101201
  Receipt Date: 20101201
  Transmission Date: 20110411
  Serious: No
  Sender: FDA-Public Use
  Company Number: None

PATIENT
  Age: 54 Year
  Sex: Female

DRUGS (1)
  1. ASMANEX TWISTHALER [Suspect]
     Indication: ASTHMA
     Dosage: USE 1 INHALTION TWICE DAILY
     Dates: start: 20100905

REACTIONS (2)
  - DEVICE MALFUNCTION [None]
  - INCORRECT DOSE ADMINISTERED [None]
